FAERS Safety Report 9506322 (Version 1)
Quarter: 2013Q1

REPORT INFORMATION
  Report Type: Spontaneous
  Country: US (occurrence: None)
  Receive Date: 20130301
  Receipt Date: 20130301
  Transmission Date: 20140127
  Serious: Yes (Other)
  Sender: FDA-Public Use
  Company Number: RB-44257-2012

PATIENT
  Sex: Male

DRUGS (1)
  1. SUBOXONE [Suspect]
     Indication: PRODUCT USED FOR UNKNOWN INDICATION
     Dosage: (UNKNOWN DOSAGE DETAILS SUBLINGUAL)
     Route: 060

REACTIONS (2)
  - Tooth disorder [None]
  - Oral pain [None]
